FAERS Safety Report 16744519 (Version 1)
Quarter: 2019Q3

REPORT INFORMATION
  Report Type: Report from Study
  Country: None (occurrence: CA)
  Receive Date: 20190827
  Receipt Date: 20190827
  Transmission Date: 20191005
  Serious: Yes (Other)
  Sender: FDA-Public Use
  Company Number: CA-ABBVIE-19K-028-2899226-00

PATIENT
  Age: 26 Year
  Sex: Male

DRUGS (1)
  1. HUMIRA [Suspect]
     Active Substance: ADALIMUMAB
     Indication: CROHN^S DISEASE
     Route: 058
     Dates: start: 20140728

REACTIONS (19)
  - Gastrointestinal wall thickening [Unknown]
  - Aphthous ulcer [Unknown]
  - C-reactive protein increased [Unknown]
  - Haematochezia [Unknown]
  - Abdominal pain [Unknown]
  - Frequent bowel movements [Unknown]
  - Gastrointestinal inflammation [Unknown]
  - Anorectal disorder [Unknown]
  - Haemoglobin decreased [Unknown]
  - Anxiety [Unknown]
  - Arthritis [Unknown]
  - Crohn^s disease [Unknown]
  - Fatigue [Unknown]
  - Platelet count increased [Unknown]
  - Large intestinal stenosis [Unknown]
  - Malnutrition [Unknown]
  - Drug level decreased [Unknown]
  - Weight decreased [Unknown]
  - Blood albumin decreased [Unknown]

NARRATIVE: CASE EVENT DATE: 20190315
